FAERS Safety Report 4861528-3 (Version None)
Quarter: 2005Q4

REPORT INFORMATION
  Report Type: 
  Country: None (occurrence: None)
  Receive Date: 20051220
  Receipt Date: 20051208
  Transmission Date: 20060501
  Serious: Yes (Hospitalization)
  Sender: FDA-Public Use
  Company Number: DE-BRISTOL-MYERS SQUIBB COMPANY-13208095

PATIENT
  Age: 61 Year
  Sex: Female

DRUGS (2)
  1. CARBOPLATIN [Suspect]
     Indication: OVARIAN CANCER
     Route: 042
  2. TOPOTECAN HCL [Suspect]
     Indication: OVARIAN CANCER
     Route: 042

REACTIONS (2)
  - HERPES ZOSTER [None]
  - THROMBOCYTOPENIA [None]
